FAERS Safety Report 9784531 (Version 4)
Quarter: 2014Q1

REPORT INFORMATION
  Report Type: Spontaneous
  Country: US (occurrence: US)
  Receive Date: 20131226
  Receipt Date: 20140227
  Transmission Date: 20141002
  Serious: No
  Sender: FDA-Public Use
  Company Number: US-PFIZER INC-2013366466

PATIENT
  Age: 80 Year
  Sex: Female

DRUGS (3)
  1. LIPITOR [Suspect]
     Dosage: 40 MG, UNK
     Dates: start: 1997
  2. LIPITOR [Suspect]
     Dosage: 40 MG, UNK
  3. ATORVASTATIN CALCIUM [Suspect]
     Dosage: UNK

REACTIONS (5)
  - Product substitution issue [Unknown]
  - Muscle disorder [Recovered/Resolved]
  - Myalgia [Unknown]
  - Muscle disorder [Unknown]
  - Muscle spasms [Unknown]
